FAERS Safety Report 6079685-2 (Version None)
Quarter: 2009Q1

REPORT INFORMATION
  Report Type: 
  Country: None (occurrence: None)
  Receive Date: 20090217
  Receipt Date: 20090211
  Transmission Date: 20090719
  Serious: Yes (Hospitalization)
  Sender: FDA-Public Use
  Company Number: ES-BRISTOL-MYERS SQUIBB COMPANY-14505085

PATIENT
  Age: 31 Year
  Sex: Female

DRUGS (3)
  1. METFORMIN HCL [Suspect]
     Route: 048
     Dates: start: 20081018, end: 20081118
  2. PROGESTERONE [Suspect]
     Route: 048
     Dates: start: 20081018, end: 20081118
  3. CLOMIFENE [Suspect]
     Route: 048

REACTIONS (3)
  - HAEMATEMESIS [None]
  - UPPER GASTROINTESTINAL HAEMORRHAGE [None]
  - VOMITING [None]
